FAERS Safety Report 5115206-6 (Version None)
Quarter: 2006Q3

REPORT INFORMATION
  Report Type: 
  Country: None (occurrence: None)
  Receive Date: 20060926
  Receipt Date: 20060818
  Transmission Date: 20061208
  Serious: Yes (Hospitalization)
  Sender: FDA-Public Use
  Company Number: US-BOEHRINGER INGELHEIM PHARMACEUTICALS, INC.-2006-BP-09657BP

PATIENT
  Sex: Male
  Weight: 71.67 kg

DRUGS (8)
  1. FLOMAX [Suspect]
     Indication: PROSTATITIS
     Route: 048
     Dates: start: 20060710
  2. FLOMAX [Suspect]
     Indication: BENIGN PROSTATIC HYPERPLASIA
  3. PROSCAR [Suspect]
     Indication: PROSTATITIS
     Route: 048
     Dates: start: 20060710
  4. PROSCAR [Suspect]
     Indication: BENIGN PROSTATIC HYPERPLASIA
  5. LORTAB [Concomitant]
     Dates: start: 20060804
  6. LIDEX [Concomitant]
     Dates: start: 20060522
  7. PREVACID [Concomitant]
     Route: 048
     Dates: start: 20060522
  8. LIPITOR [Concomitant]
     Route: 048
     Dates: start: 20060103

REACTIONS (7)
  - DIZZINESS [None]
  - FALL [None]
  - HYPOTENSION [None]
  - ORTHOSTATIC HYPOTENSION [None]
  - PLEURITIC PAIN [None]
  - RIB FRACTURE [None]
  - SYNCOPE [None]
